FAERS Safety Report 24444005 (Version 2)
Quarter: 2025Q3

REPORT INFORMATION
  Report Type: Report from Study
  Country: HN (occurrence: HN)
  Receive Date: 20241016
  Receipt Date: 20250809
  Transmission Date: 20251020
  Serious: Yes (Hospitalization, Other)
  Sender: ALEXION PHARMACEUTICALS
  Company Number: HN-AstraZeneca-CH-00721328A

PATIENT
  Sex: Male

DRUGS (1)
  1. BREZTRI [Suspect]
     Active Substance: BUDESONIDE\FORMOTEROL\GLYCOPYRROLATE
     Indication: Pulmonary fibrosis
     Dosage: 160 MICROGRAM, QID
     Dates: start: 202312

REACTIONS (6)
  - Pulmonary fibrosis [Unknown]
  - Prostate cancer [Unknown]
  - Schizophrenia [Unknown]
  - Delusion [Unknown]
  - Hospitalisation [Unknown]
  - Oxygen therapy [Unknown]
